FAERS Safety Report 15054048 (Version 2)
Quarter: 2018Q3

REPORT INFORMATION
  Report Type: Spontaneous
  Country: GB (occurrence: GB)
  Receive Date: 20180622
  Receipt Date: 20180927
  Transmission Date: 20181010
  Serious: Yes (Death, Other)
  Sender: FDA-Public Use
  Company Number: GB-009507513-1806GBR008267

PATIENT
  Age: 83 Year
  Sex: Male
  Weight: 62 kg

DRUGS (15)
  1. LEVOTHYROXINE SODIUM. [Concomitant]
     Active Substance: LEVOTHYROXINE SODIUM
  2. SERTRALINE HYDROCHLORIDE. [Concomitant]
     Active Substance: SERTRALINE HYDROCHLORIDE
  3. FRESUBIN ORIGINAL [Concomitant]
  4. ALLOPURINOL. [Concomitant]
     Active Substance: ALLOPURINOL
  5. LANSOPRAZOLE. [Concomitant]
     Active Substance: LANSOPRAZOLE
  6. ACETAMINOPHEN (+) DIHYDROCODEINE BITARTRATE [Concomitant]
     Active Substance: ACETAMINOPHEN\DIHYDROCODEINE BITARTRATE
  7. TRAZODONE HYDROCHLORIDE. [Concomitant]
     Active Substance: TRAZODONE HYDROCHLORIDE
  8. CALOGEN (CANOLA OIL (+) SUNFLOWER OIL) [Concomitant]
  9. CARBAMAZEPINE. [Concomitant]
     Active Substance: CARBAMAZEPINE
  10. ALENDRONATE SODIUM. [Suspect]
     Active Substance: ALENDRONATE SODIUM
     Indication: OSTEOPOROSIS
     Dosage: 70 MG, QW
     Route: 048
     Dates: start: 20150129
  11. LORAZEPAM. [Concomitant]
     Active Substance: LORAZEPAM
  12. MAXIJUL [Concomitant]
  13. ACETAMINOPHEN. [Concomitant]
     Active Substance: ACETAMINOPHEN
  14. ERGOCALCIFEROL. [Concomitant]
     Active Substance: ERGOCALCIFEROL
  15. MEMANTINE. [Concomitant]
     Active Substance: MEMANTINE

REACTIONS (6)
  - Pneumonia aspiration [Fatal]
  - Mouth ulceration [Fatal]
  - Mastication disorder [Unknown]
  - Oral candidiasis [Unknown]
  - Sudden death [Fatal]
  - Dysphagia [Unknown]

NARRATIVE: CASE EVENT DATE: 201501
